FAERS Safety Report 4673036-3 (Version None)
Quarter: 2005Q2

REPORT INFORMATION
  Report Type: 
  Country: None (occurrence: None)
  Receive Date: 20050523
  Receipt Date: 20050511
  Transmission Date: 20051028
  Serious: No
  Sender: FDA-Public Use
  Company Number: RS005188-J

PATIENT
  Age: 64 Year
  Sex: Male

DRUGS (1)
  1. RABEPRAZOLE SODIUM [Suspect]
     Indication: REFLUX OESOPHAGITIS
     Dosage: UNKNOWN, ORAL
     Route: 048

REACTIONS (1)
  - ADENOCARCINOMA [None]
